FAERS Safety Report 14293250 (Version 2)
Quarter: 2017Q4

REPORT INFORMATION
  Report Type: Report from Study
  Country: US (occurrence: US)
  Receive Date: 20171215
  Receipt Date: 20171220
  Transmission Date: 20180321
  Serious: Yes (Hospitalization, Other)
  Sender: FDA-Public Use
  Company Number: US-GILEAD-2017-0310329

PATIENT
  Sex: Female

DRUGS (3)
  1. DOPAMINE [Concomitant]
     Active Substance: DOPAMINE\DOPAMINE HYDROCHLORIDE
  2. RANOLAZINE. [Suspect]
     Active Substance: RANOLAZINE
     Indication: ANGINA PECTORIS
     Dosage: 500 MG, UNK
     Route: 048
     Dates: start: 201711
  3. XENADRINE RFA-1                    /01521201/ [Concomitant]

REACTIONS (8)
  - Vertigo [Unknown]
  - Syncope [Unknown]
  - Hypertension [Unknown]
  - Orthostatic hypotension [Unknown]
  - Wrong technique in product usage process [Unknown]
  - Hypotension [Unknown]
  - Heart rate decreased [Unknown]
  - Weight increased [Unknown]
